FAERS Safety Report 10360848 (Version 1)
Quarter: 2014Q3

REPORT INFORMATION
  Report Type: Report from Study
  Country: VE (occurrence: VE)
  Receive Date: 20140804
  Receipt Date: 20140804
  Transmission Date: 20150326
  Serious: Yes (Death)
  Sender: FDA-Public Use
  Company Number: VE-ABBVIE-14K-178-1267532-00

PATIENT
  Age: 67 Year
  Sex: Male

DRUGS (1)
  1. HUMIRA [Suspect]
     Active Substance: ADALIMUMAB
     Indication: COLITIS ULCERATIVE
     Route: 058
     Dates: start: 201405, end: 201406

REACTIONS (3)
  - Urinary tract infection [Fatal]
  - Colitis ulcerative [Fatal]
  - Haemorrhage [Fatal]

NARRATIVE: CASE EVENT DATE: 20140710
